FAERS Safety Report 18711368 (Version 1)
Quarter: 2021Q1

REPORT INFORMATION
  Report Type: Other
  Country: US (occurrence: US)
  Receive Date: 20210107
  Receipt Date: 20210107
  Transmission Date: 20210419
  Serious: Yes (Death)
  Sender: FDA-Public Use
  Company Number: US-ROCHE-2745570

PATIENT
  Age: 55 Year
  Sex: Female

DRUGS (9)
  1. ACTILYSE [Suspect]
     Active Substance: ALTEPLASE
     Indication: THROMBOLYSIS
     Dosage: TPA 50 MG INFUSION OVER 2 H. FREQUENCY: 1, FREQUENCY UNIT: 809
     Route: 042
  2. EPOPROSTENOL. [Concomitant]
     Active Substance: EPOPROSTENOL
     Indication: PRODUCT USED FOR UNKNOWN INDICATION
     Dosage: 25 NG/KG/MIN
     Route: 055
  3. NOREPINEPHRINE. [Concomitant]
     Active Substance: NOREPINEPHRINE
     Dosage: 4 MCG/MIN
  4. ACTILYSE [Suspect]
     Active Substance: ALTEPLASE
     Dosage: INFUSION AT 2 MG/H FOR 24 H FREQUENCY: 1, FREQUENCY UNIT: 809
     Route: 042
  5. HYDROXYCHLOROQUINE [Concomitant]
     Active Substance: HYDROXYCHLOROQUINE
     Indication: COVID-19 PNEUMONIA
  6. HEPARIN [Concomitant]
     Active Substance: HEPARIN SODIUM
     Indication: ANTICOAGULANT THERAPY
  7. NOREPINEPHRINE. [Concomitant]
     Active Substance: NOREPINEPHRINE
     Indication: DISTRIBUTIVE SHOCK
     Dosage: 30 MCG/MIN
  8. CEFTRIAXONE. [Concomitant]
     Active Substance: CEFTRIAXONE
     Indication: COVID-19 PNEUMONIA
  9. VASOPRESSIN. [Concomitant]
     Active Substance: VASOPRESSIN
     Indication: DISTRIBUTIVE SHOCK
     Dosage: 2.4 UNITS/H

REACTIONS (2)
  - Septic shock [Fatal]
  - Shock [Fatal]
